FAERS Safety Report 12471711 (Version 2)
Quarter: 2016Q3

REPORT INFORMATION
  Report Type: Spontaneous
  Country: GB (occurrence: GB)
  Receive Date: 20160616
  Receipt Date: 20160706
  Transmission Date: 20161109
  Serious: Yes (Hospitalization)
  Sender: FDA-Public Use
  Company Number: GB-PFIZER INC-2016293204

PATIENT
  Age: 74 Year
  Sex: Female
  Weight: 74 kg

DRUGS (5)
  1. PHENYTOIN SODIUM. [Suspect]
     Active Substance: PHENYTOIN SODIUM
     Dosage: 1200 MG, LOADING DOSE
     Route: 042
     Dates: start: 20160417, end: 20160417
  2. GAVISCON /00237601/ [Concomitant]
     Active Substance: ALUMINUM HYDROXIDE\MAGNESIUM CARBONATE
  3. HYPROMELLOSE [Concomitant]
     Active Substance: HYPROMELLOSES
  4. LACTULOSE. [Concomitant]
     Active Substance: LACTULOSE
  5. MEBEVERINE [Concomitant]
     Active Substance: MEBEVERINE

REACTIONS (3)
  - Depressed level of consciousness [Recovered/Resolved]
  - Anticonvulsant drug level below therapeutic [Unknown]
  - Coma scale abnormal [Recovered/Resolved]

NARRATIVE: CASE EVENT DATE: 20160517
